FAERS Safety Report 9714215 (Version 1)
Quarter: 2013Q4

REPORT INFORMATION
  Report Type: Spontaneous
  Country: US (occurrence: US)
  Receive Date: 20131126
  Receipt Date: 20131126
  Transmission Date: 20140711
  Serious: No
  Sender: FDA-Public Use
  Company Number: US-GILEAD-2008-0019408

PATIENT
  Sex: Female
  Weight: 63.5 kg

DRUGS (6)
  1. ALLOPURINOL [Concomitant]
     Route: 048
  2. LASIX [Concomitant]
     Route: 048
  3. CLARITIN [Concomitant]
     Route: 048
  4. TYLENOL [Concomitant]
     Route: 048
  5. LETAIRIS [Suspect]
     Indication: PULMONARY ARTERIAL HYPERTENSION
     Route: 048
     Dates: start: 20080208
  6. REVATIO [Concomitant]
     Route: 048

REACTIONS (1)
  - Abdominal pain upper [None]
